FAERS Safety Report 5884046-2 (Version None)
Quarter: 2008Q3

REPORT INFORMATION
  Report Type: 
  Country: None (occurrence: None)
  Receive Date: 20080915
  Receipt Date: 20080902
  Transmission Date: 20090109
  Serious: Yes (Hospitalization)
  Sender: FDA-Public Use
  Company Number: FR-MERCK-0809FRA00013

PATIENT
  Age: 69 Year
  Sex: Female

DRUGS (9)
  1. JANUVIA [Suspect]
     Indication: TYPE 2 DIABETES MELLITUS
     Route: 048
     Dates: start: 20071018
  2. LEVOTHYROXINE SODIUM [Concomitant]
     Indication: HYPOTHYROIDISM
     Route: 048
  3. FLECAINIDE ACETATE [Concomitant]
     Indication: TACHYARRHYTHMIA
     Route: 048
  4. POTASSIUM CHLORIDE [Concomitant]
     Route: 048
  5. HYDROCORTISONE [Concomitant]
     Indication: ADRENAL INSUFFICIENCY
     Route: 048
  6. ROSUVASTATIN CALCIUM [Concomitant]
     Indication: HYPERCHOLESTEROLAEMIA
     Route: 048
  7. METFORMIN HYDROCHLORIDE [Concomitant]
     Route: 048
  8. FERROUS SULFATE [Concomitant]
     Route: 048
  9. FLUINDIONE [Concomitant]
     Route: 048

REACTIONS (1)
  - ISCHAEMIC STROKE [None]
